FAERS Safety Report 22007599 (Version 1)
Quarter: 2023Q1

REPORT INFORMATION
  Report Type: Report from Study
  Country: US (occurrence: US)
  Receive Date: 20230218
  Receipt Date: 20230218
  Transmission Date: 20230417
  Serious: Yes (Other)
  Sender: FDA-Public Use
  Company Number: US-ABBVIE-4311256

PATIENT
  Sex: Female

DRUGS (1)
  1. HUMIRA [Suspect]
     Active Substance: ADALIMUMAB
     Indication: Crohn^s disease
     Route: 058
     Dates: start: 20210909

REACTIONS (3)
  - Ovarian cyst ruptured [Unknown]
  - Crohn^s disease [Unknown]
  - Muscle spasms [Unknown]

NARRATIVE: CASE EVENT DATE: 20220101
